APPROVED DRUG PRODUCT: VALPROIC ACID
Active Ingredient: VALPROIC ACID
Strength: 250MG
Dosage Form/Route: CAPSULE;ORAL
Application: A091037 | Product #001
Applicant: SUN PHARMACEUTICAL INDUSTRIES LTD
Approved: Feb 22, 2013 | RLD: No | RS: No | Type: DISCN